FAERS Safety Report 24422936 (Version 1)
Quarter: 2024Q4

REPORT INFORMATION
  Report Type: Other
  Country: US (occurrence: US)
  Receive Date: 20241010
  Receipt Date: 20241010
  Transmission Date: 20250115
  Serious: Yes (Death, Other)
  Sender: EYWA PHARMA
  Company Number: US-Eywa Pharma Inc.-2162777

PATIENT
  Age: 82 Year

DRUGS (8)
  1. BACLOFEN [Suspect]
     Active Substance: BACLOFEN
     Indication: Product used for unknown indication
  2. DONEPEZIL [Suspect]
     Active Substance: DONEPEZIL
  3. TAMSULOSIN HYDROCHLORIDE [Suspect]
     Active Substance: TAMSULOSIN HYDROCHLORIDE
  4. KETOROLAC [Suspect]
     Active Substance: KETOROLAC TROMETHAMINE
  5. APIXABAN [Suspect]
     Active Substance: APIXABAN
  6. SOTALOL [Suspect]
     Active Substance: SOTALOL\SOTALOL HYDROCHLORIDE
  7. LISINOPRIL [Suspect]
     Active Substance: LISINOPRIL
  8. FINASTERIDE [Suspect]
     Active Substance: FINASTERIDE

REACTIONS (2)
  - Death [Fatal]
  - Intentional overdose [Unknown]
